FAERS Safety Report 21209500 (Version 6)
Quarter: 2025Q2

REPORT INFORMATION
  Report Type: Spontaneous
  Country: US (occurrence: US)
  Receive Date: 20220813
  Receipt Date: 20250630
  Transmission Date: 20250716
  Serious: Yes (Hospitalization, Other)
  Sender: SANOFI AVENTIS
  Company Number: US-SA-SAC20220810000486

PATIENT
  Age: 63 Year
  Sex: Female

DRUGS (3)
  1. DUPIXENT [Suspect]
     Active Substance: DUPILUMAB
     Indication: Dermatitis atopic
     Route: 058
     Dates: start: 202202, end: 202202
  2. DUPIXENT [Suspect]
     Active Substance: DUPILUMAB
     Dosage: 300 MG, QOW
     Route: 058
     Dates: start: 2022
  3. FLOMAX [Concomitant]
     Active Substance: TAMSULOSIN HYDROCHLORIDE

REACTIONS (3)
  - Diarrhoea [Unknown]
  - Knee arthroplasty [Unknown]
  - Rash [Unknown]

NARRATIVE: CASE EVENT DATE: 20220701
